FAERS Safety Report 14217576 (Version 1)
Quarter: 2017Q4

REPORT INFORMATION
  Report Type: Spontaneous
  Country: FI (occurrence: US)
  Receive Date: 20171123
  Receipt Date: 20171123
  Transmission Date: 20180321
  Serious: No
  Sender: FDA-Public Use
  Company Number: PHHY2017US170828

PATIENT
  Sex: Male

DRUGS (2)
  1. ENTACAPONE. [Suspect]
     Active Substance: ENTACAPONE
     Dosage: 5 DF, QD
     Route: 065
  2. ENTACAPONE. [Suspect]
     Active Substance: ENTACAPONE
     Indication: PRODUCT USED FOR UNKNOWN INDICATION
     Dosage: 3 DF, QD
     Route: 065

REACTIONS (1)
  - Chromaturia [Recovered/Resolved]
